FAERS Safety Report 5152570-6 (Version None)
Quarter: 2006Q4

REPORT INFORMATION
  Report Type: 
  Country: None (occurrence: None)
  Receive Date: 20061116
  Receipt Date: 20061026
  Transmission Date: 20070319
  Serious: Yes (Hospitalization)
  Sender: FDA-Public Use
  Company Number: JP-BOEHRINGER INGELHEIM PHARMACEUTICALS, INC.-2006-BP-12682YA

PATIENT
  Sex: Male
  Weight: 64 kg

DRUGS (12)
  1. HARNAL (TAMSULOSIN) ORODISPERSABLE CR [Suspect]
     Indication: BENIGN PROSTATIC HYPERPLASIA
     Route: 048
  2. HARNAL (TAMSULOSIN) ORODISPERSABLE CR [Suspect]
     Route: 048
     Dates: start: 20060707, end: 20060814
  3. HARNAL (TAMSULOSIN) ORODISPERSABLE CR [Suspect]
     Route: 048
     Dates: start: 20060823, end: 20060915
  4. HARNAL [Suspect]
     Indication: BENIGN PROSTATIC HYPERPLASIA
     Route: 048
     Dates: start: 20010101
  5. HARNAL [Suspect]
  6. ALLOPURINOL [Concomitant]
  7. CERNILTON [Concomitant]
  8. CYANOCOBALAMIN [Concomitant]
  9. LOXONIN [Concomitant]
  10. MYONAL [Concomitant]
  11. HALCION [Concomitant]
  12. RHYTHMY [Concomitant]

REACTIONS (3)
  - DRUG ERUPTION [None]
  - PRURITUS [None]
  - RASH PAPULAR [None]
